FAERS Safety Report 7939516-X (Version None)
Quarter: 2011Q4

REPORT INFORMATION
  Report Type: 
  Country: None (occurrence: None)
  Receive Date: 20111125
  Receipt Date: 20111117
  Transmission Date: 20120403
  Serious: Yes (Life-Threatening)
  Sender: FDA-Public Use
  Company Number: JP-TYCO HEALTHCARE/MALLINCKRODT-T201102078

PATIENT
  Age: 62 Year
  Sex: Female

DRUGS (8)
  1. OMEPRAZOLE [Concomitant]
     Dosage: 20 MG, QD
     Route: 048
  2. MAGNESIUM OXIDE [Concomitant]
     Indication: CONSTIPATION
     Dosage: 330 MG, TID
     Route: 048
  3. OPTIRAY 160 [Suspect]
     Indication: COMPUTERISED TOMOGRAM
     Dosage: 92 ML, SINGLE
     Route: 042
     Dates: start: 20111014, end: 20111014
  4. ZOLPIDEM TARTRATE [Concomitant]
     Indication: INSOMNIA
     Dosage: 5 MG, QD
     Route: 048
  5. PREGABALIN [Concomitant]
     Indication: NEUROPATHY PERIPHERAL
     Dosage: 75 MG, BID
     Route: 048
  6. ATENOLOL [Concomitant]
     Indication: HYPERTENSION
     Dosage: 12.5 MG, QD
     Route: 048
  7. ENTECAVIR MONOHYDRATE [Concomitant]
     Indication: HEPATITIS B
     Dosage: 0.5 MG, QD
     Route: 048
  8. INSULIN LISPRO [Concomitant]
     Indication: DIABETES MELLITUS
     Dosage: 6 IU, TID
     Route: 058

REACTIONS (1)
  - ANAPHYLACTIC SHOCK [None]
